FAERS Safety Report 6246256-4 (Version None)
Quarter: 2009Q2

REPORT INFORMATION
  Report Type: 
  Country: None (occurrence: None)
  Receive Date: 20090626
  Receipt Date: 20090618
  Transmission Date: 20091009
  Serious: Yes (Hospitalization)
  Sender: FDA-Public Use
  Company Number: GB-JNJFOC-20090606998

PATIENT
  Age: 74 Year
  Sex: Male
  Weight: 71.2 kg

DRUGS (16)
  1. MICONAZOLE [Suspect]
     Route: 061
  2. MICONAZOLE [Suspect]
     Indication: ORAL FUNGAL INFECTION
     Route: 061
  3. WARFARIN SODIUM [Interacting]
     Indication: ATRIAL FIBRILLATION
     Route: 065
  4. ANUSOL HC [Concomitant]
     Indication: HAEMORRHOIDS
     Route: 065
  5. ASPIRIN [Concomitant]
     Indication: MYOCARDIAL ISCHAEMIA
     Route: 065
  6. ATORVASTATIN CALCIUM [Concomitant]
     Indication: HYPERCHOLESTEROLAEMIA
     Route: 065
  7. BISOPROLOL [Concomitant]
     Indication: MYOCARDIAL ISCHAEMIA
     Route: 065
  8. CHLORAMPHENICOL [Concomitant]
     Route: 065
  9. EMOLLIENTS AND PROTECTIVES [Concomitant]
     Indication: DRY SKIN
     Route: 065
  10. FERROUS SULFATE TAB [Concomitant]
     Indication: IRON DEFICIENCY
     Route: 065
  11. FLONASE [Concomitant]
     Route: 065
  12. ISOSORBIDE MONONITRATE [Concomitant]
     Indication: MYOCARDIAL ISCHAEMIA
     Route: 065
  13. LANSOPRAZOLE [Concomitant]
     Indication: DUODENAL ULCER
     Route: 065
  14. NULYTELY [Concomitant]
     Indication: CONSTIPATION
     Route: 065
  15. NICORANDIL [Concomitant]
     Route: 065
  16. TERBINAFINE HCL [Concomitant]
     Indication: ONYCHOMYCOSIS
     Route: 065

REACTIONS (2)
  - DRUG INTERACTION [None]
  - INTERNATIONAL NORMALISED RATIO INCREASED [None]
